FAERS Safety Report 8342277-6 (Version None)
Quarter: 2012Q2

REPORT INFORMATION
  Report Type: 
  Country: None (occurrence: None)
  Receive Date: 20120507
  Receipt Date: 20120502
  Transmission Date: 20120825
  Serious: Yes (Hospitalization)
  Sender: FDA-Public Use
  Company Number: FR-MERCK-1205FRA00003

PATIENT
  Age: 48 Year
  Sex: Male

DRUGS (5)
  1. JANUMET [Suspect]
     Indication: TYPE 2 DIABETES MELLITUS
     Route: 048
     Dates: start: 20111001, end: 20120118
  2. METFORMIN [Concomitant]
     Indication: TYPE 2 DIABETES MELLITUS
     Route: 065
     Dates: start: 20030101
  3. SINGULAIR [Suspect]
     Route: 048
     Dates: start: 20111001, end: 20120222
  4. ATORVASTATIN CALCIUM [Suspect]
     Route: 048
     Dates: start: 20111001, end: 20120222
  5. BECLOMETHASONE DIPROPIONATE AND FORMOTEROL FUMARATE [Concomitant]
     Indication: INTERSTITIAL LUNG DISEASE
     Route: 065
     Dates: start: 20111001

REACTIONS (3)
  - LEUKOCYTOCLASTIC VASCULITIS [None]
  - CHORIORETINITIS [None]
  - INTERSTITIAL LUNG DISEASE [None]
